FAERS Safety Report 25769518 (Version 1)
Quarter: 2025Q3

REPORT INFORMATION
  Report Type: Spontaneous
  Country: EU (occurrence: EU)
  Receive Date: 20250906
  Receipt Date: 20250906
  Transmission Date: 20251021
  Serious: Yes (Hospitalization, Other)
  Sender: ACCORD
  Company Number: EU-MLMSERVICE-20250818-PI616810-00255-1

PATIENT
  Age: 62 Year
  Sex: Female

DRUGS (2)
  1. PACLITAXEL [Suspect]
     Active Substance: PACLITAXEL
     Indication: Adenocarcinoma pancreas
  2. GEMCITABINE [Concomitant]
     Active Substance: GEMCITABINE
     Indication: Adenocarcinoma pancreas

REACTIONS (3)
  - Prinzmetal angina [Recovered/Resolved]
  - Electrocardiogram ST segment elevation [Recovered/Resolved]
  - Off label use [Unknown]
